FAERS Safety Report 6915209-2 (Version None)
Quarter: 2010Q3

REPORT INFORMATION
  Report Type: 
  Country: None (occurrence: None)
  Receive Date: 20100809
  Receipt Date: 20100729
  Transmission Date: 20110219
  Serious: Yes (Hospitalization)
  Sender: FDA-Public Use
  Company Number: PHHY2010US50672

PATIENT
  Sex: Female

DRUGS (4)
  1. EXTAVIA [Suspect]
     Indication: MULTIPLE SCLEROSIS
     Dosage: 0.25 MG, QOD
     Route: 058
     Dates: start: 20100401
  2. LORTAB [Concomitant]
     Dosage: 500 MG Q4H/PRN
  3. GABAPENTIN [Concomitant]
     Dosage: 300 MG, TID
  4. IBUPROFEN [Concomitant]
     Dosage: 200 MG, QOD (BEFORE TAKING EXTAVIA)

REACTIONS (1)
  - VIRAL INFECTION [None]
